FAERS Safety Report 17537827 (Version 1)
Quarter: 2020Q1

REPORT INFORMATION
  Report Type: Spontaneous
  Country: US (occurrence: US)
  Receive Date: 20200313
  Receipt Date: 20200313
  Transmission Date: 20200409
  Serious: No
  Sender: FDA-Public Use
  Company Number: US-009507513-2002USA011019

PATIENT
  Sex: Female
  Weight: 68 kg

DRUGS (3)
  1. TACROLIMUS. [Suspect]
     Active Substance: TACROLIMUS
     Indication: PYODERMA GANGRENOSUM
  2. TRIAMCINOLONE [Suspect]
     Active Substance: TRIAMCINOLONE
     Indication: PYODERMA GANGRENOSUM
  3. DIPROLENE [Suspect]
     Active Substance: BETAMETHASONE DIPROPIONATE
     Indication: PYODERMA GANGRENOSUM

REACTIONS (2)
  - Product quality issue [Unknown]
  - Drug ineffective [Unknown]

NARRATIVE: CASE EVENT DATE: 201702
